FAERS Safety Report 19773322 (Version 3)
Quarter: 2023Q2

REPORT INFORMATION
  Report Type: Spontaneous
  Country: US (occurrence: US)
  Receive Date: 20210901
  Receipt Date: 20230523
  Transmission Date: 20230721
  Serious: No
  Sender: FDA-Public Use
  Company Number: NVSC2021US190018

PATIENT
  Sex: Female

DRUGS (2)
  1. ADAKVEO [Suspect]
     Active Substance: CRIZANLIZUMAB-TMCA
     Indication: Sickle cell anaemia with crisis
     Dosage: 5 MG/KG, UNK, QMO
     Route: 042
     Dates: start: 20210717, end: 20210817
  2. ADAKVEO [Suspect]
     Active Substance: CRIZANLIZUMAB-TMCA
     Indication: Sickle cell disease

REACTIONS (3)
  - Nausea [Unknown]
  - Infusion related reaction [Unknown]
  - Pain [Unknown]

NARRATIVE: CASE EVENT DATE: 20210717
